FAERS Safety Report 6137391-X (Version None)
Quarter: 2009Q1

REPORT INFORMATION
  Report Type: 
  Country: None (occurrence: None)
  Receive Date: 20090326
  Receipt Date: 20090313
  Transmission Date: 20090719
  Serious: Yes (Other)
  Sender: FDA-Public Use
  Company Number: DSU-2009-00246

PATIENT
  Age: 54 Year
  Sex: Male
  Weight: 65.7716 kg

DRUGS (3)
  1. BENICAR HCT [Suspect]
     Indication: HYPERTENSION
     Dosage: 40/12.5MG (QD), PER ORAL
     Route: 048
     Dates: start: 20070101, end: 20081110
  2. BENICAR [Suspect]
     Indication: HYPERTENSION
     Dosage: 20 MG (20 MG, QD), PER ORAL
     Route: 048
     Dates: start: 20081110
  3. PRILOSEC (OMEPRAZOLE) (20 MILLIGRAM) (OMEPRAZOLE) [Concomitant]

REACTIONS (4)
  - DERMATOMYOSITIS [None]
  - METASTASES TO LIVER [None]
  - METASTASES TO LUNG [None]
  - RENAL IMPAIRMENT [None]
